FAERS Safety Report 11118984 (Version 1)
Quarter: 2015Q2

REPORT INFORMATION
  Report Type: Spontaneous
  Country: US (occurrence: None)
  Receive Date: 20150515
  Receipt Date: 20150515
  Transmission Date: 20150821
  Serious: Yes (Other)
  Sender: FDA-Public Use
  Company Number: None

PATIENT
  Age: 59 Year
  Sex: Male

DRUGS (1)
  1. ENTYVIO [Suspect]
     Active Substance: VEDOLIZUMAB
     Indication: COLITIS ULCERATIVE
     Dosage: 1 OR DOSES   300 MG INDUCTION DOSING ?WEEKS 0,2 AND 6

REACTIONS (2)
  - Impaired work ability [None]
  - Rash [None]

NARRATIVE: CASE EVENT DATE: 20150415
